FAERS Safety Report 7817111-0 (Version None)
Quarter: 2011Q4

REPORT INFORMATION
  Report Type: 
  Country: None (occurrence: None)
  Receive Date: 20111017
  Receipt Date: 20111003
  Transmission Date: 20120403
  Serious: Yes (Other)
  Sender: FDA-Public Use
  Company Number: PHHY2011BR88360

PATIENT
  Age: 53 Year
  Sex: Male
  Weight: 107.2 kg

DRUGS (6)
  1. EXFORGE [Suspect]
     Dosage: 320/5MG
  2. METFORMIN HYDROCHLORIDE [Suspect]
     Dosage: UNK UKN, UNK
  3. VYTORIN [Suspect]
     Dosage: UNK UKN, UNK
  4. ASPIRIN [Suspect]
     Dosage: UNK UKN, UNK
  5. EXFORGE [Suspect]
     Dosage: 320/10 MG
  6. HYDROCHLOROTHIAZIDE [Suspect]
     Dosage: 12.5 MG, UNK

REACTIONS (8)
  - LEFT VENTRICULAR FAILURE [None]
  - VENTRICULAR HYPERTROPHY [None]
  - RENAL DISORDER [None]
  - NODULE [None]
  - BODY MASS INDEX INCREASED [None]
  - ELECTROCARDIOGRAM REPOLARISATION ABNORMALITY [None]
  - LEFT VENTRICULAR DYSFUNCTION [None]
  - HEPATIC STEATOSIS [None]
